FAERS Safety Report 8254795-X (Version None)
Quarter: 2012Q2

REPORT INFORMATION
  Report Type: 
  Country: None (occurrence: None)
  Receive Date: 20120403
  Receipt Date: 20120323
  Transmission Date: 20120825
  Serious: Yes (Hospitalization)
  Sender: FDA-Public Use
  Company Number: PHEH2011US08046

PATIENT
  Sex: Female
  Weight: 57.6 kg

DRUGS (5)
  1. GLEEVEC [Suspect]
     Indication: GASTROINTESTINAL STROMAL TUMOUR
     Dosage: 400 MG, DAILY
     Route: 048
     Dates: start: 20060501
  2. PROCARDIA [Concomitant]
     Dosage: 30 MG QD
     Route: 048
  3. FOSAMAX [Concomitant]
     Dosage: 70 MG QW
     Route: 048
  4. MEGACE [Concomitant]
     Indication: DECREASED APPETITE
     Dosage: 400 MG BID
     Route: 048
  5. GLEEVEC [Suspect]
     Dosage: 400 MG, DAILY
     Route: 048

REACTIONS (2)
  - ASTHENIA [None]
  - HIP FRACTURE [None]
